FAERS Safety Report 20073257 (Version 1)
Quarter: 2021Q4

REPORT INFORMATION
  Report Type: Spontaneous
  Country: DE (occurrence: DE)
  Receive Date: 20211116
  Receipt Date: 20211116
  Transmission Date: 20220304
  Serious: Yes (Congenital Anomaly, Other)
  Sender: FDA-Public Use
  Company Number: DE-EMBRYOTOX-202009082

PATIENT

DRUGS (6)
  1. LAMOTRIGINE [Suspect]
     Active Substance: LAMOTRIGINE
     Indication: Epilepsy
     Dosage: 400 MG, QD (400 [MG/D ]/ DOSAGE INCREASED FROM WEEK 10 2 SEPARATED DOSES)
     Route: 064
     Dates: start: 20200612, end: 20201123
  2. ACETAMINOPHEN [Concomitant]
     Active Substance: ACETAMINOPHEN
     Indication: Pain
     Dosage: 500 MG, QD (500 [MG/D (IF NECESSARY) ]/ IF REQUIRED)
     Route: 064
  3. FOLIC ACID [Concomitant]
     Active Substance: FOLIC ACID
     Indication: Prophylaxis of neural tube defect
     Dosage: 5 MG, QD (5 [MG / D (UP TO 0.8 MG / D)])
     Route: 064
  4. L-THYROXIN HENNING 100 [Concomitant]
     Indication: Autoimmune thyroiditis
     Dosage: 100 UG, QD (100 [?G/D ])
     Route: 064
     Dates: start: 20200612, end: 20201123
  5. CETIRIZINE [Concomitant]
     Active Substance: CETIRIZINE HYDROCHLORIDE
     Indication: Rhinitis allergic
     Dosage: 10 MG, QD (10 [MG/D ])
     Route: 064
     Dates: start: 20200612, end: 20201123
  6. IBUPROFEN [Concomitant]
     Active Substance: IBUPROFEN
     Indication: Pain
     Dosage: 400 MG, QD 400 [MG / D (IF NECESSARY)/ IF REQUIRED
     Route: 064

REACTIONS (2)
  - Spina bifida [Not Recovered/Not Resolved]
  - Foetal exposure during pregnancy [Unknown]
